FAERS Safety Report 7275386-3 (Version None)
Quarter: 2011Q1

REPORT INFORMATION
  Report Type: 
  Country: None (occurrence: None)
  Receive Date: 20110125
  Receipt Date: 20110113
  Transmission Date: 20110831
  Serious: Yes (Hospitalization)
  Sender: FDA-Public Use
  Company Number: 2010SP064191

PATIENT

DRUGS (3)
  1. TEMODAL [Suspect]
     Indication: GLIOMA
     Dosage: 85 MG/M2;QD;PO
     Route: 048
  2. TRIMETHOPRIM + SULFAMETHOXAZOLE [Concomitant]
  3. CORTICOSTEROIDS [Concomitant]

REACTIONS (1)
  - CEREBRAL HAEMORRHAGE [None]
